FAERS Safety Report 9955033 (Version 1)
Quarter: 2014Q1

REPORT INFORMATION
  Report Type: Report from Study
  Country: US (occurrence: US)
  Receive Date: 20140304
  Receipt Date: 20140304
  Transmission Date: 20141002
  Serious: No
  Sender: FDA-Public Use
  Company Number: US-ABBVIE-13P-163-1078740-00

PATIENT
  Age: 48 Year
  Sex: Female
  Weight: 70.37 kg

DRUGS (7)
  1. HUMIRA [Suspect]
     Indication: CROHN^S DISEASE
     Dates: start: 20130313, end: 20130313
  2. HUMIRA [Suspect]
     Dates: start: 20130327, end: 20130327
  3. HUMIRA [Suspect]
     Dates: start: 20130410
  4. PREVACID [Concomitant]
     Indication: GASTROOESOPHAGEAL REFLUX DISEASE
  5. ZOLOFT [Concomitant]
     Indication: DEPRESSION
  6. PENTASA [Concomitant]
     Indication: CROHN^S DISEASE
  7. TOPAMAX [Concomitant]
     Indication: MIGRAINE

REACTIONS (1)
  - Injection site bruising [Not Recovered/Not Resolved]
